FAERS Safety Report 7468249-1 (Version None)
Quarter: 2011Q2

REPORT INFORMATION
  Report Type: 
  Country: None (occurrence: None)
  Receive Date: 20110509
  Receipt Date: 20110426
  Transmission Date: 20111010
  Serious: Yes (Hospitalization, Other)
  Sender: FDA-Public Use
  Company Number: US-JNJFOC-2010029489

PATIENT
  Sex: Female
  Weight: 83.92 kg

DRUGS (11)
  1. PROTONIX [Concomitant]
     Route: 065
  2. ATIVAN [Concomitant]
     Route: 065
  3. PEPCID [Concomitant]
     Route: 065
  4. ROLAIDS [Suspect]
     Indication: DYSPEPSIA
     Dosage: ONE PACK A DAY, SIX COUNT
     Route: 048
     Dates: start: 20090901, end: 20101213
  5. GAVISCON [Concomitant]
     Route: 065
  6. NITROGLYCERIN [Concomitant]
     Route: 061
  7. PHENERGAN HCL [Concomitant]
     Route: 065
  8. LOVENOX [Concomitant]
     Route: 065
  9. NORVASC [Concomitant]
     Route: 065
  10. ROLAIDS [Suspect]
     Dosage: ONE PACK A DAY, SIX COUNT
     Route: 048
     Dates: start: 20090901, end: 20101213
  11. ASPIRIN [Concomitant]
     Route: 065

REACTIONS (9)
  - PRODUCT QUALITY ISSUE [None]
  - CHILLS [None]
  - VOMITING [None]
  - MYOCARDIAL INFARCTION [None]
  - CONSTIPATION [None]
  - EXPIRED DRUG ADMINISTERED [None]
  - NAUSEA [None]
  - ABDOMINAL PAIN UPPER [None]
  - INCORRECT DRUG ADMINISTRATION DURATION [None]
